FAERS Safety Report 12859109 (Version 1)
Quarter: 2016Q4

REPORT INFORMATION
  Report Type: Report from Study
  Country: US (occurrence: US)
  Receive Date: 20161018
  Receipt Date: 20161018
  Transmission Date: 20170207
  Serious: Yes (Death, Hospitalization)
  Sender: FDA-Public Use
  Company Number: US-B.I. PHARMACEUTICALS,INC./RIDGEFIELD-2016-BI-32862BP

PATIENT
  Sex: Male

DRUGS (2)
  1. OFEV [Suspect]
     Active Substance: NINTEDANIB
     Indication: IDIOPATHIC PULMONARY FIBROSIS
     Route: 048
     Dates: start: 20160513
  2. OFEV [Suspect]
     Active Substance: NINTEDANIB
     Route: 048
     Dates: start: 20160515

REACTIONS (8)
  - Pyrexia [Unknown]
  - Sepsis [Fatal]
  - Diarrhoea [Unknown]
  - Malaise [Fatal]
  - Cough [Unknown]
  - Hypoxia [Unknown]
  - Nausea [Unknown]
  - Dyspnoea exertional [Unknown]
